FAERS Safety Report 5409629-5 (Version None)
Quarter: 2007Q3

REPORT INFORMATION
  Report Type: 
  Country: None (occurrence: None)
  Receive Date: 20070807
  Receipt Date: 20070807
  Transmission Date: 20080115
  Serious: Yes (Hospitalization)
  Sender: FDA-Public Use
  Company Number: None

PATIENT
  Age: 76 Year
  Sex: Male

DRUGS (7)
  1. QUINAPRIL [Suspect]
     Indication: CARDIAC FAILURE CONGESTIVE
     Dosage: 10 MG DAILY PO
     Route: 048
  2. QUINAPRIL [Suspect]
     Indication: HYPERTENSION
     Dosage: 10 MG DAILY PO
     Route: 048
  3. LOPRESSOR [Suspect]
     Indication: HYPERTENSION
     Dosage: 50 MG BID PO
     Route: 048
  4. COUMADIN [Concomitant]
  5. QUINAPRIL HCL [Concomitant]
  6. ASPIRIN [Concomitant]
  7. LIPITOR [Concomitant]

REACTIONS (4)
  - COUGH [None]
  - DISEASE RECURRENCE [None]
  - INFECTION [None]
  - PLEURAL EFFUSION [None]
